FAERS Safety Report 7263450-4 (Version None)
Quarter: 2011Q1

REPORT INFORMATION
  Report Type: 
  Country: None (occurrence: None)
  Receive Date: 20110130
  Receipt Date: 20101107
  Transmission Date: 20110831
  Serious: No
  Sender: FDA-Public Use
  Company Number: US-ABBOTT-10P-163-0683919-00

PATIENT
  Age: 60 Year
  Sex: Male

DRUGS (6)
  1. ANTI-INFLAMMATORY [Concomitant]
     Indication: PRODUCT USED FOR UNKNOWN INDICATION
     Route: 048
  2. BENICAR [Concomitant]
     Indication: PRODUCT USED FOR UNKNOWN INDICATION
     Route: 048
  3. PROBIOTICS [Concomitant]
     Indication: PRODUCT USED FOR UNKNOWN INDICATION
     Route: 048
  4. HUMIRA [Suspect]
     Indication: CROHN'S DISEASE
     Dates: start: 20100901
  5. PREDNISONE [Concomitant]
     Indication: PRODUCT USED FOR UNKNOWN INDICATION
     Route: 048
  6. SYNTHROID [Concomitant]
     Indication: PRODUCT USED FOR UNKNOWN INDICATION
     Route: 048

REACTIONS (7)
  - DYSPEPSIA [None]
  - LOSS OF CONSCIOUSNESS [None]
  - FALL [None]
  - INJECTION SITE HAEMATOMA [None]
  - ABDOMINAL PAIN UPPER [None]
  - CONTUSION [None]
  - NAUSEA [None]
